FAERS Safety Report 12789047 (Version 1)
Quarter: 2016Q3

REPORT INFORMATION
  Report Type: Spontaneous
  Country: US (occurrence: US)
  Receive Date: 20160928
  Receipt Date: 20160928
  Transmission Date: 20161109
  Serious: Yes (Hospitalization, Other)
  Sender: FDA-Public Use
  Company Number: US-SAOL THERAPEUTICS-2016SAO00760

PATIENT
  Sex: Female

DRUGS (14)
  1. CARAFATE [Concomitant]
     Active Substance: SUCRALFATE
  2. GILENYA [Suspect]
     Active Substance: FINGOLIMOD HYDROCHLORIDE
     Dosage: 0.5 MG, 1X/DAY
     Route: 048
     Dates: start: 20160520
  3. NEXIUM [Concomitant]
     Active Substance: ESOMEPRAZOLE MAGNESIUM
  4. CALCIUM +VIT D [Concomitant]
     Active Substance: CALCIUM\VITAMIN D
  5. BACLOFEN. [Suspect]
     Active Substance: BACLOFEN
  6. PROVIGIL [Concomitant]
     Active Substance: MODAFINIL
  7. FENTANYL. [Concomitant]
     Active Substance: FENTANYL
  8. GILENYA [Suspect]
     Active Substance: FINGOLIMOD HYDROCHLORIDE
     Indication: MULTIPLE SCLEROSIS
     Dosage: 0.5 MG, 1X/DAY
     Route: 048
     Dates: start: 201108, end: 201603
  9. SKELAXIN [Concomitant]
     Active Substance: METAXALONE
  10. HYDROCHLOROTHIAZIDE. [Suspect]
     Active Substance: HYDROCHLOROTHIAZIDE
     Indication: BLADDER DISORDER
  11. SYNTHROID [Concomitant]
     Active Substance: LEVOTHYROXINE SODIUM
  12. ARICEPT [Concomitant]
     Active Substance: DONEPEZIL HYDROCHLORIDE
  13. CYMBALTA [Concomitant]
     Active Substance: DULOXETINE HYDROCHLORIDE
     Dosage: UNK
  14. MAGNESIUM [Concomitant]
     Active Substance: MAGNESIUM

REACTIONS (11)
  - Ligament rupture [Unknown]
  - Bladder disorder [Unknown]
  - Malaise [Unknown]
  - Fall [Unknown]
  - Intervertebral disc protrusion [Unknown]
  - Headache [Unknown]
  - Drug hypersensitivity [Unknown]
  - Neuralgia [Unknown]
  - Swelling [Unknown]
  - Abdominal distension [Unknown]
  - Alopecia [Unknown]

NARRATIVE: CASE EVENT DATE: 2014
